FAERS Safety Report 21086811 (Version 2)
Quarter: 2022Q3

REPORT INFORMATION
  Report Type: Other
  Country: DE (occurrence: None)
  Receive Date: 20220715
  Receipt Date: 20220721
  Transmission Date: 20221026
  Serious: No
  Sender: FDA-Public Use
  Company Number: DE-ROCHE-3138316

PATIENT
  Age: 45 Year
  Sex: Female

DRUGS (2)
  1. OCREVUS [Suspect]
     Active Substance: OCRELIZUMAB
     Indication: Relapsing-remitting multiple sclerosis
     Route: 042
     Dates: start: 20220707
  2. PREGABALIN [Concomitant]
     Active Substance: PREGABALIN
     Route: 065

REACTIONS (4)
  - Fatigue [Recovering/Resolving]
  - Somnolence [Recovering/Resolving]
  - Headache [Recovering/Resolving]
  - Limb discomfort [Not Recovered/Not Resolved]

NARRATIVE: CASE EVENT DATE: 20220707
